FAERS Safety Report 9343257 (Version 1)
Quarter: 2013Q2

REPORT INFORMATION
  Report Type: Spontaneous
  Country: GB (occurrence: GB)
  Receive Date: 20130611
  Receipt Date: 20130611
  Transmission Date: 20140414
  Serious: Yes (Hospitalization)
  Sender: FDA-Public Use
  Company Number: GB-ABBOTT-13X-167-1102156-00

PATIENT
  Age: 39 Year
  Sex: Male

DRUGS (3)
  1. VALPROATE SODIUM [Suspect]
     Indication: CONVULSION
  2. CLOZAPINE [Suspect]
     Indication: SCHIZOPHRENIA
  3. AZITHROMYCIN [Suspect]
     Indication: URETHRITIS

REACTIONS (9)
  - C-reactive protein increased [Recovered/Resolved]
  - Urethritis [Recovering/Resolving]
  - Drug interaction [Unknown]
  - Drug level increased [Unknown]
  - Malaise [Recovering/Resolving]
  - Tremor [Recovering/Resolving]
  - Balance disorder [Recovering/Resolving]
  - White blood cell count [Recovered/Resolved]
  - Neutrophil count increased [Unknown]
